FAERS Safety Report 9061276 (Version 1)
Quarter: 2013Q1

REPORT INFORMATION
  Report Type: Spontaneous
  Country: US (occurrence: US)
  Receive Date: 20130204
  Receipt Date: 20130204
  Transmission Date: 20140127
  Serious: No
  Sender: FDA-Public Use
  Company Number: US-ASTRAZENECA-2013SE04056

PATIENT
  Age: 41 Year
  Sex: Male
  Weight: 145.2 kg

DRUGS (3)
  1. SYMBICORT PMDI [Suspect]
     Indication: ASTHMA
     Dosage: 160/4.5 2 PUFFS, TWO TIMES A DAY
     Route: 055
     Dates: start: 201201
  2. SIMVASTATIN [Concomitant]
     Indication: BLOOD CHOLESTEROL INCREASED
     Route: 048
  3. VENTOLIN [Concomitant]
     Indication: ASTHMA

REACTIONS (3)
  - Asthma [Unknown]
  - Intentional drug misuse [Unknown]
  - Drug ineffective [Unknown]
